FAERS Safety Report 11433596 (Version 2)
Quarter: 2015Q4

REPORT INFORMATION
  Report Type: Spontaneous
  Country: US (occurrence: US)
  Receive Date: 20150831
  Receipt Date: 20151027
  Transmission Date: 20160304
  Serious: No
  Sender: FDA-Public Use
  Company Number: US-JNJCP-30000301471

PATIENT
  Sex: Male

DRUGS (1)
  1. NEUTROGENA MEN SENSITIVE SKIN OIL FREE MOISTURE SUNSCREEN BROAD SPECTRUM SPF30 [Suspect]
     Active Substance: AVOBENZONE\HOMOSALATE\OCTISALATE\OCTOCRYLENE\OXYBENZONE
     Indication: PRODUCT USED FOR UNKNOWN INDICATION
     Dosage: ON A DAILY BASIS
     Route: 061

REACTIONS (1)
  - No adverse event [Unknown]
